FAERS Safety Report 8907427 (Version 2)
Quarter: 2013Q2

REPORT INFORMATION
  Report Type: Spontaneous
  Country: US (occurrence: US)
  Receive Date: 20121114
  Receipt Date: 20130522
  Transmission Date: 20140414
  Serious: No
  Sender: FDA-Public Use
  Company Number: US-BIOGENIDEC-2012BI051628

PATIENT
  Sex: Female

DRUGS (1)
  1. AVONEX [Suspect]
     Indication: MULTIPLE SCLEROSIS
     Route: 030
     Dates: start: 2005

REACTIONS (6)
  - Multiple sclerosis [Unknown]
  - Fear [Unknown]
  - Back pain [Unknown]
  - Migraine [Unknown]
  - Influenza like illness [Unknown]
  - Pain [Unknown]
